FAERS Safety Report 7238577-3 (Version None)
Quarter: 2011Q1

REPORT INFORMATION
  Report Type: 
  Country: None (occurrence: None)
  Receive Date: 20110118
  Receipt Date: 20110110
  Transmission Date: 20110831
  Serious: Yes (Other)
  Sender: FDA-Public Use
  Company Number: 2010GW000844

PATIENT
  Age: 46 Year
  Sex: Female
  Weight: 115.6 kg

DRUGS (19)
  1. MAXAIR [Suspect]
     Indication: ASTHMA
     Dosage: BID; INH
     Route: 055
  2. XYZAL [Concomitant]
  3. MULTI-VITAMINS [Concomitant]
  4. PULMICORT [Suspect]
     Indication: ASTHMA
     Dosage: 180 UG; BID;
  5. RHINOCORT [Suspect]
     Indication: SEASONAL ALLERGY
     Dosage: 32 UG; QD;
  6. MEDROL [Suspect]
     Indication: SINUSITIS
  7. B12 /00056201/ [Concomitant]
  8. ZILEUTON (ZILEUTON) (600 MG) [Suspect]
     Indication: ASTHMA
     Dosage: 1200 MG; TID;
  9. THEOPHYLLINE [Suspect]
     Indication: ASTHMA
     Dosage: 200 MG; QAM;, 400 MG; HS;
  10. RELPAX [Concomitant]
  11. CALCIUM WITH VITAMIN D /00944201/ [Concomitant]
  12. MILNACIPRAN HYDROCHLORIDE (MILNACIPRAN HYDROCHLORIDE) [Suspect]
     Indication: FIBROMYALGIA
     Dosage: 200 MG; BID;, 12.5 MG; QD;, 12.5 MG; BID;, 50 MG; BID;, 100 MG; BID;
     Dates: start: 20100601, end: 20100701
  13. MILNACIPRAN HYDROCHLORIDE (MILNACIPRAN HYDROCHLORIDE) [Suspect]
     Indication: FIBROMYALGIA
     Dosage: 200 MG; BID;, 12.5 MG; QD;, 12.5 MG; BID;, 50 MG; BID;, 100 MG; BID;
     Dates: start: 20100601, end: 20100601
  14. MILNACIPRAN HYDROCHLORIDE (MILNACIPRAN HYDROCHLORIDE) [Suspect]
     Indication: FIBROMYALGIA
     Dosage: 200 MG; BID;, 12.5 MG; QD;, 12.5 MG; BID;, 50 MG; BID;, 100 MG; BID;
     Dates: start: 20100801, end: 20100914
  15. MILNACIPRAN HYDROCHLORIDE (MILNACIPRAN HYDROCHLORIDE) [Suspect]
     Indication: FIBROMYALGIA
     Dosage: 200 MG; BID;, 12.5 MG; QD;, 12.5 MG; BID;, 50 MG; BID;, 100 MG; BID;
     Dates: start: 20100701, end: 20100801
  16. NEXIUM [Concomitant]
  17. PERCOCET [Concomitant]
  18. ADVAIR HFA [Suspect]
     Indication: ASTHMA
     Dosage: BID;
  19. TOPAMAX [Concomitant]

REACTIONS (5)
  - SINUSITIS [None]
  - CONDITION AGGRAVATED [None]
  - CATARACT [None]
  - BLOOD PRESSURE INCREASED [None]
  - OVERDOSE [None]
